FAERS Safety Report 9779592 (Version 1)
Quarter: 2013Q4

REPORT INFORMATION
  Report Type: Spontaneous
  Country: US (occurrence: US)
  Receive Date: 20131223
  Receipt Date: 20131223
  Transmission Date: 20140711
  Serious: No
  Sender: FDA-Public Use
  Company Number: US-PFIZER INC-2013363698

PATIENT
  Age: 18 Year
  Sex: Female
  Weight: 74.83 kg

DRUGS (1)
  1. ADVIL COLD AND SINUS [Suspect]
     Indication: NASOPHARYNGITIS
     Dosage: UNK, ONCE
     Dates: start: 20131216, end: 20131216

REACTIONS (1)
  - Palpitations [Unknown]
